FAERS Safety Report 4594286-0 (Version None)
Quarter: 2005Q1

REPORT INFORMATION
  Report Type: 
  Country: None (occurrence: None)
  Receive Date: 20050301
  Receipt Date: 20040915
  Transmission Date: 20050727
  Serious: No
  Sender: FDA-Public Use
  Company Number: US-GLAXOSMITHKLINE-A0525799A

PATIENT
  Age: 64 Year
  Sex: Male

DRUGS (2)
  1. VALTREX [Suspect]
     Dosage: 1G THREE TIMES PER DAY
     Route: 048
     Dates: start: 20040801
  2. ZETIA [Concomitant]

REACTIONS (1)
  - WEIGHT DECREASED [None]
